FAERS Safety Report 7221768-5 (Version None)
Quarter: 2011Q1

REPORT INFORMATION
  Report Type: 
  Country: None (occurrence: None)
  Receive Date: 20110104
  Receipt Date: 20101220
  Transmission Date: 20110831
  Serious: Yes (Life-Threatening, Hospitalization, Disabling)
  Sender: FDA-Public Use
  Company Number: AUR-APL-2010-03071

PATIENT
  Age: 69 Year
  Sex: Female

DRUGS (14)
  1. SIMVASTATIN [Suspect]
     Dosage: 40 MG-ORAL
     Route: 048
     Dates: start: 20061201, end: 20101022
  2. CITALOPRAM [Concomitant]
  3. PERINDORPIL [Concomitant]
  4. TRIMETHOPRIM [Concomitant]
  5. WARFARIN SODIUM [Concomitant]
  6. ACETYLSALICYLIC ACID [Concomitant]
  7. FRUSEMIDE [Concomitant]
  8. BUMETANIDE [Concomitant]
  9. FLOXACILLIN SODIUM [Concomitant]
  10. NEBIVOLOL [Concomitant]
  11. SPIRONOLACTONE [Concomitant]
  12. AMIODARONE [Suspect]
     Dosage: 200MG-ORAL
     Route: 048
     Dates: start: 20091001, end: 20101022
  13. CODEINE SULFATE [Concomitant]
  14. PARACETAMOL [Concomitant]

REACTIONS (6)
  - INTERNATIONAL NORMALISED RATIO INCREASED [None]
  - BLOOD CREATININE INCREASED [None]
  - MOBILITY DECREASED [None]
  - ALANINE AMINOTRANSFERASE INCREASED [None]
  - RHABDOMYOLYSIS [None]
  - ANXIETY [None]
